FAERS Safety Report 18509081 (Version 1)
Quarter: 2020Q4

REPORT INFORMATION
  Report Type: Spontaneous
  Country: US (occurrence: US)
  Receive Date: 20201117
  Receipt Date: 20201117
  Transmission Date: 20210114
  Serious: Yes (Other)
  Sender: FDA-Public Use
  Company Number: US-ROCHE-2711875

PATIENT
  Sex: Female
  Weight: 67 kg

DRUGS (2)
  1. OZONE [Concomitant]
     Active Substance: OZONE
  2. OCREVUS [Suspect]
     Active Substance: OCRELIZUMAB
     Indication: RELAPSING-REMITTING MULTIPLE SCLEROSIS
     Route: 065

REACTIONS (4)
  - Seizure [Unknown]
  - Vasogenic cerebral oedema [Unknown]
  - Herpes virus infection [Unknown]
  - Confusional state [Recovered/Resolved]
